FAERS Safety Report 15814604 (Version 2)
Quarter: 2019Q2

REPORT INFORMATION
  Report Type: Report from Study
  Country: JP (occurrence: JP)
  Receive Date: 20190111
  Receipt Date: 20190617
  Transmission Date: 20190711
  Serious: Yes (Hospitalization)
  Sender: FDA-Public Use
  Company Number: ALJP2015JP001016

PATIENT
  Age: 77 Year
  Sex: Male

DRUGS (3)
  1. HYALEIN [Concomitant]
     Active Substance: HYALURONATE SODIUM
     Indication: PRODUCT USED FOR UNKNOWN INDICATION
     Dosage: UNK
     Route: 047
     Dates: start: 20141113
  2. TAPROS//TAFLUPROST [Concomitant]
     Active Substance: TAFLUPROST
     Indication: NORMAL TENSION GLAUCOMA
     Dosage: UNK
     Route: 047
     Dates: end: 20150509
  3. AZORGA COMBINATION OPHTHALMIC SUSPENSION [Suspect]
     Active Substance: BRINZOLAMIDE\TIMOLOL MALEATE
     Indication: NORMAL TENSION GLAUCOMA
     Dosage: 1 GTT, BID
     Route: 047
     Dates: start: 20140922, end: 20150509

REACTIONS (1)
  - Angina pectoris [Recovered/Resolved]

NARRATIVE: CASE EVENT DATE: 201412
